FAERS Safety Report 14927187 (Version 1)
Quarter: 2018Q2

REPORT INFORMATION
  Report Type: Spontaneous
  Country: ES (occurrence: ES)
  Receive Date: 20180523
  Receipt Date: 20180523
  Transmission Date: 20180711
  Serious: Yes (Death, Life-Threatening, Other)
  Sender: FDA-Public Use
  Company Number: ES-STRIDES ARCOLAB LIMITED-2018SP003944

PATIENT

DRUGS (2)
  1. ERTAPENEM. [Concomitant]
     Active Substance: ERTAPENEM SODIUM
     Indication: SEPSIS
     Dosage: UNK
     Route: 065
  2. VANCOMYCIN [Suspect]
     Active Substance: VANCOMYCIN
     Indication: SEPSIS
     Dosage: UNK
     Route: 042

REACTIONS (6)
  - Oral mucosa erosion [Unknown]
  - Dermatitis exfoliative generalised [Unknown]
  - Oral mucosal blistering [Unknown]
  - Skin exfoliation [Unknown]
  - Rash erythematous [Unknown]
  - Linear IgA disease [Fatal]
